FAERS Safety Report 11157935 (Version 2)
Quarter: 2015Q3

REPORT INFORMATION
  Report Type: Report from Study
  Country: CA (occurrence: CA)
  Receive Date: 20150603
  Receipt Date: 20150720
  Transmission Date: 20151125
  Serious: Yes (Death, Hospitalization, Other)
  Sender: FDA-Public Use
  Company Number: CA-JNJFOC-20150518825

PATIENT
  Age: 72 Year
  Sex: Male

DRUGS (2)
  1. SIMPONI [Suspect]
     Active Substance: GOLIMUMAB
     Indication: PSORIATIC ARTHROPATHY
     Route: 058
     Dates: start: 20091113
  2. CASODEX [Concomitant]
     Active Substance: BICALUTAMIDE
     Route: 065

REACTIONS (6)
  - Death [Fatal]
  - Fall [Unknown]
  - Metastasis [Unknown]
  - Torticollis [Unknown]
  - Nausea [Unknown]
  - Back injury [Not Recovered/Not Resolved]

NARRATIVE: CASE EVENT DATE: 2014
